FAERS Safety Report 23786041 (Version 1)
Quarter: 2024Q2

REPORT INFORMATION
  Report Type: Report from Study
  Country: US (occurrence: US)
  Receive Date: 20240426
  Receipt Date: 20240426
  Transmission Date: 20240716
  Serious: Yes (Hospitalization)
  Sender: FDA-Public Use
  Company Number: US-ABBVIE-5733464

PATIENT
  Age: 59 Year
  Sex: Female

DRUGS (3)
  1. SKYRIZI [Suspect]
     Active Substance: RISANKIZUMAB-RZAA
     Indication: Psoriatic arthropathy
     Dosage: DOSAGE: 150 MG/ML SKYRIZI PEN, STRENGTH :150MG/ML?150MG/ML 1 PEN SUBCUTANEOUS AT WEEK 0
     Route: 058
     Dates: start: 20231208, end: 20231208
  2. SKYRIZI [Suspect]
     Active Substance: RISANKIZUMAB-RZAA
     Dosage: DOSAGE: 150 MG/ML SKYRIZI PEN, STRENGTH :150MG/ML?150MG/ML 1 PEN SUBCUTANEOUS AT WEEK 4
     Route: 058
     Dates: start: 20240110, end: 20240110
  3. SKYRIZI [Suspect]
     Active Substance: RISANKIZUMAB-RZAA
     Dosage: DOSAGE: 150 MG/ML SKYRIZI PEN, STRENGTH :150MG/ML?150MG/ML 1 PEN SUBCUTANEOUS EVERY 12 WEEKS
     Route: 058
     Dates: start: 20240401

REACTIONS (4)
  - Small intestinal obstruction [Unknown]
  - Urinary tract infection [Unknown]
  - Psoriasis [Unknown]
  - Arthralgia [Unknown]

NARRATIVE: CASE EVENT DATE: 20240401
